FAERS Safety Report 7809579-0 (Version None)
Quarter: 2011Q4

REPORT INFORMATION
  Report Type: 
  Country: None (occurrence: None)
  Receive Date: 20111012
  Receipt Date: 20111012
  Transmission Date: 20120403
  Serious: Yes (Other)
  Sender: FDA-Public Use
  Company Number: PHHO2008US10641

PATIENT
  Sex: Female
  Weight: 67.9 kg

DRUGS (3)
  1. GINKGO [Concomitant]
  2. GILENYA [Suspect]
     Indication: MULTIPLE SCLEROSIS
     Dosage: 0.5 MG, UNK
     Route: 048
     Dates: start: 20070705, end: 20080828
  3. ASPIRIN [Concomitant]
     Indication: INSOMNIA

REACTIONS (11)
  - POLLAKIURIA [None]
  - TREMOR [None]
  - MUCOUS MEMBRANE DISORDER [None]
  - SYNCOPE [None]
  - LYMPHOCYTE COUNT DECREASED [None]
  - NEUTROPHIL COUNT INCREASED [None]
  - MULTIPLE SCLEROSIS RELAPSE [None]
  - CHILLS [None]
  - IDIOPATHIC THROMBOCYTOPENIC PURPURA [None]
  - INFECTION [None]
  - PYREXIA [None]
